FAERS Safety Report 8570423-8 (Version None)
Quarter: 2012Q3

REPORT INFORMATION
  Report Type: 
  Country: None (occurrence: None)
  Receive Date: 20120803
  Receipt Date: 20120730
  Transmission Date: 20120928
  Serious: Yes (Death)
  Sender: FDA-Public Use
  Company Number: US-ASTRAZENECA-2012SE54053

PATIENT
  Age: 83 Year
  Sex: Male

DRUGS (1)
  1. SEROQUEL [Suspect]
     Route: 048

REACTIONS (3)
  - RESPIRATORY ARREST [None]
  - DEMENTIA ALZHEIMER'S TYPE [None]
  - RENAL FAILURE [None]
